FAERS Safety Report 13805463 (Version 2)
Quarter: 2017Q3

REPORT INFORMATION
  Report Type: Spontaneous
  Country: AT (occurrence: AT)
  Receive Date: 20170728
  Receipt Date: 20170729
  Transmission Date: 20171127
  Serious: Yes (Death, Hospitalization, Other)
  Sender: FDA-Public Use
  Company Number: AT-BRISTOL-MYERS SQUIBB COMPANY-BMS-2017-066334

PATIENT
  Age: 7 Decade
  Sex: Female

DRUGS (1)
  1. ELIQUIS [Suspect]
     Active Substance: APIXABAN
     Indication: PRODUCT USED FOR UNKNOWN INDICATION
     Dosage: UNK, BID
     Route: 065

REACTIONS (9)
  - General physical health deterioration [Unknown]
  - Product use in unapproved indication [Unknown]
  - Arterial haemorrhage [Unknown]
  - Intestinal resection [Unknown]
  - Post procedural haemorrhage [Unknown]
  - Cardiovascular disorder [Fatal]
  - Laparotomy [Unknown]
  - Off label use [Unknown]
  - Coagulopathy [Unknown]
